FAERS Safety Report 5257429-1 (Version None)
Quarter: 2007Q1

REPORT INFORMATION
  Report Type: 
  Country: None (occurrence: None)
  Receive Date: 20070307
  Receipt Date: 20060724
  Transmission Date: 20070707
  Serious: No
  Sender: FDA-Public Use
  Company Number: US-GLAXOSMITHKLINE-A0614063A

PATIENT
  Age: 71 Year
  Sex: Male
  Weight: 90.9 kg

DRUGS (4)
  1. REQUIP [Suspect]
     Indication: RESTLESS LEGS SYNDROME
     Route: 048
  2. METHADONE HCL [Concomitant]
     Indication: DRUG USE FOR UNKNOWN INDICATION
     Dosage: 40MG PER DAY
     Route: 048
     Dates: start: 20010101
  3. FUROSEMIDE [Concomitant]
     Dosage: 10MG PER DAY
     Route: 048
  4. TRAZODONE HCL [Concomitant]
     Dosage: 50MGD PER DAY
     Route: 048

REACTIONS (1)
  - DRUG INEFFECTIVE [None]
